FAERS Safety Report 7471533-9 (Version None)
Quarter: 2011Q2

REPORT INFORMATION
  Report Type: 
  Country: None (occurrence: None)
  Receive Date: 20110502
  Receipt Date: 20110425
  Transmission Date: 20111010
  Serious: Yes (Hospitalization)
  Sender: FDA-Public Use
  Company Number: 2011SP006159

PATIENT
  Age: 75 Year
  Sex: Female

DRUGS (5)
  1. ANAFRANIL [Concomitant]
  2. LACTULOSE [Concomitant]
  3. CYMBALTA [Concomitant]
  4. MIRTAZAPINE [Suspect]
     Indication: DEPRESSION
     Dosage: 15 MG;QD;PO
     Route: 048
     Dates: start: 20101002
  5. URSODEOXYCHOLIC AC [Concomitant]

REACTIONS (4)
  - WEIGHT DECREASED [None]
  - HEPATIC FAILURE [None]
  - ALTERED STATE OF CONSCIOUSNESS [None]
  - HYPERAMMONAEMIA [None]
